FAERS Safety Report 16333180 (Version 1)
Quarter: 2019Q2

REPORT INFORMATION
  Report Type: Spontaneous
  Country: US (occurrence: US)
  Receive Date: 20190520
  Receipt Date: 20190520
  Transmission Date: 20190711
  Serious: No
  Sender: FDA-Public Use
  Company Number: US-GE HEALTHCARE LIFE SCIENCES-2019CSU001555

PATIENT
  Age: 86 Year
  Sex: Female
  Weight: 72.72 kg

DRUGS (23)
  1. METOPROLOL. [Concomitant]
     Active Substance: METOPROLOL
  2. MYOVIEW [Suspect]
     Active Substance: TECHNETIUM TC-99M TETROFOSMIN
     Indication: DYSPNOEA
  3. POTASSIUM [Concomitant]
     Active Substance: POTASSIUM
  4. FLECAINIDE [Concomitant]
     Active Substance: FLECAINIDE
  5. MYOVIEW [Suspect]
     Active Substance: TECHNETIUM TC-99M TETROFOSMIN
     Indication: CARDIAC STRESS TEST
     Dosage: 1591 MBQ (43 MCI), ONCE
     Route: 042
     Dates: start: 20190307, end: 20190307
  6. NITRO [Concomitant]
     Active Substance: NITROGLYCERIN
     Indication: CHEST DISCOMFORT
  7. NITRO [Concomitant]
     Active Substance: NITROGLYCERIN
     Indication: DYSPNOEA EXERTIONAL
  8. GLIMEPIRIDE. [Concomitant]
     Active Substance: GLIMEPIRIDE
  9. TOVIAZ [Concomitant]
     Active Substance: FESOTERODINE FUMARATE
  10. MYOVIEW [Suspect]
     Active Substance: TECHNETIUM TC-99M TETROFOSMIN
     Indication: CHEST PAIN
  11. CARAFATE [Concomitant]
     Active Substance: SUCRALFATE
  12. TECHNETIUM TC 99M [Concomitant]
     Active Substance: TECHNETIUM TC-99M
     Dosage: UNK UNK, SINGLE
     Route: 042
     Dates: start: 20190307, end: 20190307
  13. RANEXA [Concomitant]
     Active Substance: RANOLAZINE
  14. TRAMADOL. [Concomitant]
     Active Substance: TRAMADOL
  15. OMEPRAZOLE. [Concomitant]
     Active Substance: OMEPRAZOLE
  16. XARELTO [Concomitant]
     Active Substance: RIVAROXABAN
  17. IRON [Concomitant]
     Active Substance: IRON
  18. VITAMIN D3 [Concomitant]
     Active Substance: CHOLECALCIFEROL
  19. LASIX [Concomitant]
     Active Substance: FUROSEMIDE
  20. MYOVIEW [Suspect]
     Active Substance: TECHNETIUM TC-99M TETROFOSMIN
     Indication: SCAN MYOCARDIAL PERFUSION
  21. ASA [Concomitant]
     Active Substance: ASPIRIN
  22. TOPIRAMATE. [Concomitant]
     Active Substance: TOPIRAMATE
  23. ATORVASTATIN [Concomitant]
     Active Substance: ATORVASTATIN

REACTIONS (2)
  - No adverse event [Recovered/Resolved]
  - Drug ineffective [Recovered/Resolved]

NARRATIVE: CASE EVENT DATE: 20190307
